FAERS Safety Report 18691079 (Version 1)
Quarter: 2021Q1

REPORT INFORMATION
  Report Type: Spontaneous
  Country: FR (occurrence: FR)
  Receive Date: 20210101
  Receipt Date: 20210101
  Transmission Date: 20210419
  Serious: Yes (Death, Other)
  Sender: FDA-Public Use
  Company Number: FR-TAKEDA-2020TEU012414

PATIENT
  Age: 60 Year
  Sex: Female

DRUGS (1)
  1. LANSOPRAZOLE. [Suspect]
     Active Substance: LANSOPRAZOLE
     Indication: HIATUS HERNIA
     Route: 048
     Dates: end: 20201116

REACTIONS (4)
  - Hypocalcaemia [Fatal]
  - Hyponatraemia [Fatal]
  - Hypokalaemia [Fatal]
  - Hypomagnesaemia [Fatal]

NARRATIVE: CASE EVENT DATE: 20200719
